FAERS Safety Report 21500980 (Version 1)
Quarter: 2022Q4

REPORT INFORMATION
  Report Type: Spontaneous
  Country: KR (occurrence: KR)
  Receive Date: 20221025
  Receipt Date: 20221025
  Transmission Date: 20230113
  Serious: Yes (Other)
  Sender: FDA-Public Use
  Company Number: KR-ORGANON-O2210KOR001195

PATIENT
  Age: 73 Year
  Sex: Female

DRUGS (3)
  1. ALENDRONATE SODIUM [Suspect]
     Active Substance: ALENDRONATE SODIUM
     Indication: Osteoporosis
     Dosage: UNK; TOTAL DURATION WAS 10 YEARS
     Route: 048
     Dates: start: 2001, end: 2011
  2. IBANDRONATE SODIUM [Suspect]
     Active Substance: IBANDRONATE SODIUM
     Indication: Osteoporosis
     Dosage: UNK; TOTAL DURATION WAS 10 YEARS
     Dates: start: 2001, end: 2011
  3. ZOLEDRONATE DISODIUM [Suspect]
     Active Substance: ZOLEDRONATE DISODIUM
     Indication: Osteoporosis
     Dosage: UNK, TOTAL DURATION WAS 17 YEARS
     Dates: start: 2001, end: 2018

REACTIONS (1)
  - Ulna fracture [Not Recovered/Not Resolved]

NARRATIVE: CASE EVENT DATE: 20110101
